FAERS Safety Report 6273913-6 (Version None)
Quarter: 2009Q3

REPORT INFORMATION
  Report Type: 
  Country: None (occurrence: None)
  Receive Date: 20090716
  Receipt Date: 20090702
  Transmission Date: 20100115
  Serious: Yes (Hospitalization)
  Sender: FDA-Public Use
  Company Number: 1000007346

PATIENT
  Age: 71 Year
  Sex: Male

DRUGS (6)
  1. MEMANTINE HCL [Suspect]
     Indication: DEMENTIA ALZHEIMER'S TYPE
     Dosage: 20 MG (10 MG, 2 IN 1 D), ORAL
     Route: 048
     Dates: start: 20070101, end: 20090618
  2. MEMANTINE HCL [Suspect]
     Indication: DEMENTIA ALZHEIMER'S TYPE
     Dosage: ORAL
     Route: 048
     Dates: start: 20090601
  3. HYDROCHLOROTHIAZIDE [Concomitant]
  4. FLOMAX [Concomitant]
  5. ARICEPT [Concomitant]
  6. TEMAZEPAM [Concomitant]

REACTIONS (2)
  - AGGRESSION [None]
  - DRUG WITHDRAWAL SYNDROME [None]
